FAERS Safety Report 22316815 (Version 1)
Quarter: 2023Q2

REPORT INFORMATION
  Report Type: Spontaneous
  Country: BR (occurrence: BR)
  Receive Date: 20230513
  Receipt Date: 20230513
  Transmission Date: 20230722
  Serious: Yes (Other)
  Sender: FDA-Public Use
  Company Number: BR-002147023-NVSC2023BR108268

PATIENT
  Sex: Male

DRUGS (1)
  1. HYRIMOZ [Suspect]
     Active Substance: ADALIMUMAB-ADAZ
     Indication: Product used for unknown indication
     Dosage: UNK (2LISY BI BR) (MANUFACTURING DATE: 11 APR 2022)
     Route: 065

REACTIONS (2)
  - Infarction [Unknown]
  - Inappropriate schedule of product administration [Not Recovered/Not Resolved]
